FAERS Safety Report 17744890 (Version 1)
Quarter: 2020Q2

REPORT INFORMATION
  Report Type: Spontaneous
  Country: US (occurrence: US)
  Receive Date: 20200504
  Receipt Date: 20200504
  Transmission Date: 20200714
  Serious: Yes (Hospitalization)
  Sender: FDA-Public Use
  Company Number: None

PATIENT
  Age: 35 Year
  Sex: Female
  Weight: 57 kg

DRUGS (1)
  1. NALTREXONE [Suspect]
     Active Substance: NALTREXONE
     Indication: ALCOHOL USE DISORDER
     Dosage: ?          OTHER FREQUENCY:ONCE MONTHLY;?
     Route: 030
     Dates: start: 20200325

REACTIONS (5)
  - Injection site pain [None]
  - Injection site abscess [None]
  - Culture wound positive [None]
  - Clostridium test positive [None]
  - Abscess limb [None]

NARRATIVE: CASE EVENT DATE: 20200425
